FAERS Safety Report 18127517 (Version 1)
Quarter: 2020Q3

REPORT INFORMATION
  Report Type: Report from Study
  Country: TR (occurrence: TR)
  Receive Date: 20200810
  Receipt Date: 20200810
  Transmission Date: 20201103
  Serious: Yes (Other)
  Sender: FDA-Public Use
  Company Number: TR-TEVA-2020-TR-1812554

PATIENT
  Age: 60 Year
  Sex: Female

DRUGS (3)
  1. BEVACIZUMAB. [Concomitant]
     Active Substance: BEVACIZUMAB
     Indication: CERVIX CANCER METASTATIC
     Dosage: SHE RECEIVED SIX CYCLES; EACH CYCLE 3 WEEKS APART
     Route: 065
  2. CISPLATIN. [Concomitant]
     Active Substance: CISPLATIN
     Indication: CERVIX CANCER METASTATIC
     Dosage: SHE RECEIVED SIX CYCLES; EACH CYCLE 3 WEEKS APART
     Route: 065
  3. PACLITAXEL. [Suspect]
     Active Substance: PACLITAXEL
     Indication: CERVIX CANCER METASTATIC
     Dosage: SHE RECEIVED SIX CYCLES; EACH CYCLE 3 WEEKS APART
     Route: 065

REACTIONS (2)
  - Visual impairment [Recovered/Resolved]
  - Cystoid macular oedema [Recovered/Resolved]
